FAERS Safety Report 5678765-0 (Version None)
Quarter: 2008Q1

REPORT INFORMATION
  Report Type: 
  Country: None (occurrence: None)
  Receive Date: 20080324
  Receipt Date: 20080324
  Transmission Date: 20080703
  Serious: Yes (Other)
  Sender: FDA-Public Use
  Company Number: None

PATIENT
  Age: 56 Year
  Sex: Female
  Weight: 128.8216 kg

DRUGS (1)
  1. CHANTIX [Suspect]
     Indication: SMOKING CESSATION THERAPY
     Dosage: 1MG TWICE A DAY PO
     Route: 048
     Dates: start: 20080307, end: 20080321

REACTIONS (5)
  - CRYING [None]
  - DECREASED INTEREST [None]
  - DEPRESSED MOOD [None]
  - IRRITABILITY [None]
  - NAUSEA [None]
